FAERS Safety Report 11866697 (Version 1)
Quarter: 2015Q4

REPORT INFORMATION
  Report Type: Spontaneous
  Country: US (occurrence: US)
  Receive Date: 20151224
  Receipt Date: 20151224
  Transmission Date: 20160305
  Serious: Yes (Death)
  Sender: FDA-Public Use
  Company Number: US-SUN PHARMACEUTICAL INDUSTRIES LTD-2015US-107391

PATIENT
  Age: 42 Year
  Sex: Male
  Weight: 77.6 kg

DRUGS (5)
  1. FENTANYL. [Suspect]
     Active Substance: FENTANYL
     Indication: ABDOMINAL PAIN
     Dosage: 150 ?G/HR
     Route: 062
  2. HYDROMORPHONE HYDROCHLORIDE. [Suspect]
     Active Substance: HYDROMORPHONE HYDROCHLORIDE
     Indication: CANCER PAIN
     Dosage: 1 MG, AT 3HR, 7 HR AND 14HR
     Route: 042
  3. ALPRAZOLAM. [Suspect]
     Active Substance: ALPRAZOLAM
     Indication: ANXIETY
     Route: 048
  4. FENTANYL. [Suspect]
     Active Substance: FENTANYL
     Indication: ABDOMINAL PAIN
     Route: 062
  5. HYDROMORPHINE HYDROCHLORIDE [Suspect]
     Active Substance: HYDROMORPHONE
     Indication: CANCER PAIN
     Route: 048

REACTIONS (15)
  - Overdose [Fatal]
  - Foreign body [None]
  - Rib fracture [None]
  - Procedural complication [None]
  - Fall [None]
  - Accidental death [None]
  - Apnoea [Fatal]
  - Irritability [None]
  - Restlessness [None]
  - Traumatic liver injury [None]
  - Drug abuse [Fatal]
  - Intentional product misuse [Fatal]
  - Cyanosis [Fatal]
  - Cardiac arrest [None]
  - Toxicity to various agents [None]
